FAERS Safety Report 17930755 (Version 1)
Quarter: 2020Q2

REPORT INFORMATION
  Report Type: Report from Study
  Country: GB (occurrence: GB)
  Receive Date: 20200623
  Receipt Date: 20200623
  Transmission Date: 20200714
  Serious: Yes (Hospitalization)
  Sender: FDA-Public Use
  Company Number: GB-BAUSCH-BL-2020-011729

PATIENT
  Age: 79 Year
  Sex: Female

DRUGS (2)
  1. KYNTHEUM [Suspect]
     Active Substance: BRODALUMAB
     Indication: PSORIASIS
     Dosage: 210MG WEEK 0, 1, 2 THEN EVERY TWO WEEKS
     Route: 058
     Dates: start: 20200316, end: 20200522
  2. LEVOTHYROXINE SODIUM. [Concomitant]
     Active Substance: LEVOTHYROXINE SODIUM
     Indication: PRODUCT USED FOR UNKNOWN INDICATION

REACTIONS (5)
  - Hypoglycaemia [Recovered/Resolved with Sequelae]
  - Blood potassium increased [Recovered/Resolved with Sequelae]
  - Depressed mood [Not Recovered/Not Resolved]
  - Pruritus [Unknown]
  - Hospitalisation [Unknown]

NARRATIVE: CASE EVENT DATE: 20200325
